FAERS Safety Report 13819959 (Version 1)
Quarter: 2017Q3

REPORT INFORMATION
  Report Type: Report from Study
  Country: GB (occurrence: GB)
  Receive Date: 20170731
  Receipt Date: 20170731
  Transmission Date: 20171127
  Serious: Yes (Death, Hospitalization, Other)
  Sender: FDA-Public Use
  Company Number: GB-GILEAD-2017-0280681

PATIENT
  Age: 46 Year
  Sex: Male

DRUGS (3)
  1. AZTREONAM LYSINE [Suspect]
     Active Substance: AZTREONAM LYSINE
     Indication: CYSTIC FIBROSIS
     Dosage: 75 MG, TID, ALTERNATE MONTHS
     Route: 055
     Dates: start: 201608
  2. BRONCHITOL [Concomitant]
     Indication: CYSTIC FIBROSIS
     Dosage: 400 MG, BID
     Route: 055
     Dates: start: 201608
  3. PULMOZYME [Concomitant]
     Active Substance: DORNASE ALFA
     Indication: CYSTIC FIBROSIS
     Dosage: 2.5 MG, QD
     Route: 055
     Dates: start: 201608

REACTIONS (1)
  - Death [Fatal]

NARRATIVE: CASE EVENT DATE: 2017
